APPROVED DRUG PRODUCT: LORAZEPAM
Active Ingredient: LORAZEPAM
Strength: 4MG/ML
Dosage Form/Route: INJECTABLE;INJECTION
Application: A074243 | Product #002 | TE Code: AP
Applicant: HOSPIRA INC
Approved: Apr 12, 1994 | RLD: No | RS: No | Type: RX